FAERS Safety Report 26095758 (Version 1)
Quarter: 2025Q4

REPORT INFORMATION
  Report Type: Spontaneous
  Country: US (occurrence: US)
  Receive Date: 20251127
  Receipt Date: 20251127
  Transmission Date: 20260118
  Serious: No
  Sender: UROGEN PHARMA
  Company Number: US-UROGEN PHARMA LTD.-2025-UGN-000179

PATIENT

DRUGS (2)
  1. JELMYTO [Suspect]
     Active Substance: MITOMYCIN
     Indication: Product used for unknown indication
     Dosage: UNK, (INSTILLATION)
     Dates: start: 20250918, end: 20250918
  2. JELMYTO [Suspect]
     Active Substance: MITOMYCIN
     Dosage: UNK, (INSTILLATION) ( 3 CC OF SALINE)
     Dates: start: 20250925, end: 20250925

REACTIONS (2)
  - Device leakage [Unknown]
  - Catheter site discharge [Unknown]
